FAERS Safety Report 25485420 (Version 2)
Quarter: 2025Q3

REPORT INFORMATION
  Report Type: Report from Study
  Country: US (occurrence: US)
  Receive Date: 20250626
  Receipt Date: 20250702
  Transmission Date: 20251020
  Serious: Yes (Hospitalization, Other)
  Sender: PFIZER
  Company Number: US-PFIZER INC-202500085872

PATIENT
  Age: 57 Year
  Sex: Female
  Weight: 124.73 kg

DRUGS (23)
  1. INLYTA [Suspect]
     Active Substance: AXITINIB
     Indication: Renal cancer
     Dosage: 5 MG, 2X/DAY
     Route: 048
  2. INLYTA [Suspect]
     Active Substance: AXITINIB
     Dosage: 5 MG, 2X/DAY
     Route: 048
  3. INLYTA [Suspect]
     Active Substance: AXITINIB
     Dosage: 5 MG, 2X/DAY
     Route: 048
     Dates: start: 20250205, end: 20250613
  4. LISINOPRIL [Concomitant]
     Active Substance: LISINOPRIL
  5. HEPARIN [Concomitant]
     Active Substance: HEPARIN SODIUM
  6. FONDAPARINUX [Concomitant]
     Active Substance: FONDAPARINUX
  7. LORATADINE [Concomitant]
     Active Substance: LORATADINE
  8. VITAMIN D NOS [Concomitant]
     Active Substance: CHOLECALCIFEROL\ERGOCALCIFEROL
  9. DILAUDID [Concomitant]
     Active Substance: HYDROMORPHONE HYDROCHLORIDE
  10. PANTOPRAZOLE [Concomitant]
     Active Substance: PANTOPRAZOLE
  11. KEYTRUDA [Concomitant]
     Active Substance: PEMBROLIZUMAB
  12. FERROUS SULFATE [Concomitant]
     Active Substance: FERROUS SULFATE
  13. MIDODRINE [Concomitant]
     Active Substance: MIDODRINE
  14. SENNA LEAF [Concomitant]
     Active Substance: SENNA LEAF
  15. BISACODYL [Concomitant]
     Active Substance: BISACODYL
  16. ONDANSETRON [Concomitant]
     Active Substance: ONDANSETRON
  17. POTASSIUM CHLORIDE [Concomitant]
     Active Substance: POTASSIUM CHLORIDE
  18. ACETAMINOPHEN [Concomitant]
     Active Substance: ACETAMINOPHEN
  19. INSULIN LISPRO [Concomitant]
     Active Substance: INSULIN LISPRO
  20. GABAPENTIN [Concomitant]
     Active Substance: GABAPENTIN
  21. METROCREAM [Concomitant]
     Active Substance: METRONIDAZOLE
  22. FEXOFENADINE [Concomitant]
     Active Substance: FEXOFENADINE HYDROCHLORIDE
  23. NAPROXEN [Concomitant]
     Active Substance: NAPROXEN

REACTIONS (9)
  - Noninfective gingivitis [Unknown]
  - Feeding disorder [Unknown]
  - Renal cancer [Unknown]
  - Malignant neoplasm progression [Unknown]
  - Metastasis [Unknown]
  - Diarrhoea [Recovered/Resolved]
  - Constipation [Recovered/Resolved]
  - Nausea [Recovered/Resolved]
  - Skin disorder [Unknown]

NARRATIVE: CASE EVENT DATE: 20250620
